FAERS Safety Report 6104789-5 (Version None)
Quarter: 2009Q1

REPORT INFORMATION
  Report Type: 
  Country: None (occurrence: None)
  Receive Date: 20090306
  Receipt Date: 20090220
  Transmission Date: 20090719
  Serious: Yes (Hospitalization, Other)
  Sender: FDA-Public Use
  Company Number: PHHY2009CH06465

PATIENT
  Sex: Male

DRUGS (3)
  1. LEPONEX [Suspect]
     Indication: SCHIZOPHRENIA, PARANOID TYPE
     Dosage: 250 MG/DAY
     Dates: start: 20080101
  2. AKINETON [Concomitant]
     Dosage: 4 MG/DAY
  3. GASTROZEPIN [Concomitant]
     Dosage: 50 MG/DAY

REACTIONS (9)
  - BLOOD PRESSURE [None]
  - DYSTONIA [None]
  - ELECTROENCEPHALOGRAM [None]
  - GLASGOW COMA SCALE [None]
  - GRAND MAL CONVULSION [None]
  - HYPOCALCAEMIA [None]
  - SALIVARY HYPERSECRETION [None]
  - SOMNOLENCE [None]
  - UNRESPONSIVE TO STIMULI [None]
